FAERS Safety Report 13744948 (Version 1)
Quarter: 2017Q3

REPORT INFORMATION
  Report Type: Spontaneous
  Country: US (occurrence: US)
  Receive Date: 20170712
  Receipt Date: 20170712
  Transmission Date: 20171127
  Serious: No
  Sender: FDA-Public Use
  Company Number: US-PFIZER INC-2017299498

PATIENT
  Age: 77 Year
  Sex: Female
  Weight: 88 kg

DRUGS (2)
  1. DILTIAZEM HCL [Suspect]
     Active Substance: DILTIAZEM HYDROCHLORIDE
     Dosage: UNK
  2. CARDIZEM [Suspect]
     Active Substance: DILTIAZEM HYDROCHLORIDE

REACTIONS (1)
  - Dizziness [Unknown]
